FAERS Safety Report 17116497 (Version 3)
Quarter: 2021Q4

REPORT INFORMATION
  Report Type: Spontaneous
  Country: US (occurrence: US)
  Receive Date: 20191205
  Receipt Date: 20211123
  Transmission Date: 20220303
  Serious: No
  Sender: FDA-Public Use
  Company Number: US-ROCHE-2227260

PATIENT
  Age: 60 Year
  Sex: Female

DRUGS (2)
  1. TARCEVA [Suspect]
     Active Substance: ERLOTINIB HYDROCHLORIDE
     Indication: Product used for unknown indication
     Dosage: UNK, ONCE DAILY
     Route: 048
     Dates: start: 201811
  2. TARCEVA [Suspect]
     Active Substance: ERLOTINIB HYDROCHLORIDE
     Dosage: UNK, ONCE DAILY
     Route: 048
     Dates: start: 201812

REACTIONS (2)
  - Influenza like illness [Unknown]
  - Influenza [Unknown]

NARRATIVE: CASE EVENT DATE: 20181206
